FAERS Safety Report 7048868 (Version 9)
Quarter: 2013Q3

REPORT INFORMATION
  Report Type: Report from Study
  Country: CA (occurrence: CA)
  Receive Date: 20090713
  Receipt Date: 20130802
  Transmission Date: 20140515
  Serious: Yes (Other)
  Sender: FDA-Public Use
  Company Number: PHHY2009CA27370

PATIENT
  Age: 58 Year
  Sex: Male

DRUGS (1)
  1. SANDOSTATIN LAR [Suspect]
     Indication: METASTATIC CARCINOID TUMOUR
     Dosage: 60 MG, EVERY 4 WEEKS
     Route: 030
     Dates: start: 20060926

REACTIONS (9)
  - Food poisoning [Unknown]
  - Pyrexia [Unknown]
  - Liver disorder [Recovering/Resolving]
  - Inflammation [Recovering/Resolving]
  - Cholelithiasis [Unknown]
  - Hepatic pain [Recovering/Resolving]
  - Abdominal pain [Unknown]
  - Hepatomegaly [Unknown]
  - Blood pressure systolic increased [Unknown]
